FAERS Safety Report 5926495-X (Version None)
Quarter: 2008Q4

REPORT INFORMATION
  Report Type: 
  Country: None (occurrence: None)
  Receive Date: 20081022
  Receipt Date: 20081015
  Transmission Date: 20090506
  Serious: Yes (Other)
  Sender: FDA-Public Use
  Company Number: PHHY2008ES24554

PATIENT
  Age: 53 Year
  Sex: Male

DRUGS (4)
  1. TEGRETOL [Suspect]
     Indication: DEPRESSION
     Dosage: UNK
  2. RISPERIDONE [Concomitant]
  3. MIRTAZAPINE [Concomitant]
  4. SPIRIVA [Concomitant]

REACTIONS (7)
  - BLADDER SPASM [None]
  - HYPOCHLORAEMIA [None]
  - HYPONATRAEMIA [None]
  - RENAL TUBULAR DISORDER [None]
  - THIRST [None]
  - VOMITING [None]
  - WEIGHT DECREASED [None]
